FAERS Safety Report 17087198 (Version 1)
Quarter: 2019Q4

REPORT INFORMATION
  Report Type: Spontaneous
  Country: RO (occurrence: RO)
  Receive Date: 20191128
  Receipt Date: 20191128
  Transmission Date: 20200122
  Serious: Yes (Life-Threatening, Hospitalization)
  Sender: FDA-Public Use
  Company Number: RO-ACCORD-162457

PATIENT
  Age: 72 Year
  Sex: Female

DRUGS (4)
  1. OXALIPLATIN ACCORD [Suspect]
     Active Substance: OXALIPLATIN
     Indication: NON-HODGKIN^S LYMPHOMA
     Dosage: 150 MG
     Route: 042
     Dates: start: 20191004, end: 20191004
  2. GEMCITABINE. [Concomitant]
     Active Substance: GEMCITABINE
     Dosage: 1500 MG
     Route: 042
     Dates: start: 20191004
  3. RITUXIMAB. [Concomitant]
     Active Substance: RITUXIMAB
     Dosage: 1400 MG
     Route: 058
     Dates: start: 20191004
  4. OSETRON [Concomitant]
     Active Substance: ONDANSETRON HYDROCHLORIDE
     Dosage: 8 MG
     Route: 042
     Dates: start: 20191004

REACTIONS (3)
  - Anaphylactic reaction [Recovered/Resolved]
  - Acute respiratory failure [Recovered/Resolved]
  - Laryngeal oedema [Recovered/Resolved]

NARRATIVE: CASE EVENT DATE: 20191004
